FAERS Safety Report 4303672-5 (Version None)
Quarter: 2004Q1

REPORT INFORMATION
  Report Type: 
  Country: None (occurrence: None)
  Receive Date: 20040225
  Receipt Date: 20031017
  Transmission Date: 20041129
  Serious: Yes (Hospitalization)
  Sender: FDA-Public Use
  Company Number: BW-BRISTOL-MYERS SQUIBB COMPANY-12427472

PATIENT

DRUGS (3)
  1. EFAVIRENZ [Suspect]
     Indication: HIV INFECTION
     Dosage: HOLD ALL STUDY MEDICATIONS
  2. DIDANOSINE [Suspect]
     Indication: HIV INFECTION
     Dosage: HOLD ALL STUDY MEDICATIONS
  3. ZIDOVUDINE [Suspect]
     Indication: HIV INFECTION
     Dosage: HOLD ALL STUDY MEDICATIONS

REACTIONS (8)
  - ASTHENIA [None]
  - DEHYDRATION [None]
  - DIARRHOEA [None]
  - DYSURIA [None]
  - FLANK PAIN [None]
  - GAMMA-GLUTAMYLTRANSFERASE ABNORMAL [None]
  - MOBILITY DECREASED [None]
  - PNEUMONIA [None]
